FAERS Safety Report 10540243 (Version 1)
Quarter: 2014Q4

REPORT INFORMATION
  Report Type: Spontaneous
  Country: IR (occurrence: None)
  Receive Date: 20141022
  Receipt Date: 20141022
  Transmission Date: 20150529
  Serious: Yes (Death, Hospitalization)
  Sender: FDA-Public Use
  Company Number: NSR_01641_2014

PATIENT
  Age: 30 Year
  Sex: Male

DRUGS (1)
  1. TRAMADOL [Suspect]
     Active Substance: TRAMADOL
     Indication: PRODUCT USED FOR UNKNOWN INDICATION
     Dosage: 140 TABLETS OF 100MG (NOT THE PRESCRIBED AMOUNT)??

REACTIONS (29)
  - Mydriasis [None]
  - Sinus bradycardia [None]
  - Ketonuria [None]
  - Blood glucose decreased [None]
  - Cardiac arrest [None]
  - Blood pressure decreased [None]
  - Heart rate decreased [None]
  - Blood creatinine increased [None]
  - Intentional overdose [None]
  - Coma [None]
  - Pneumonia aspiration [None]
  - Brain oedema [None]
  - Hypoxia [None]
  - Decerebrate posture [None]
  - Toxicity to various agents [None]
  - Muscle spasms [None]
  - Hypotension [None]
  - Aspartate aminotransferase increased [None]
  - Apnoea [None]
  - Decubitus ulcer [None]
  - Respiratory rate decreased [None]
  - Haematuria [None]
  - Proteinuria [None]
  - Glycosuria [None]
  - Seizure [None]
  - Coagulopathy [None]
  - Alanine aminotransferase increased [None]
  - Respiratory alkalosis [None]
  - Renal failure [None]
